FAERS Safety Report 9216600 (Version 1)
Quarter: 2013Q2

REPORT INFORMATION
  Report Type: Spontaneous
  Country: US (occurrence: US)
  Receive Date: 20130408
  Receipt Date: 20130408
  Transmission Date: 20140414
  Serious: No
  Sender: FDA-Public Use
  Company Number: US-PFIZER INC-2013093319

PATIENT
  Age: 78 Year
  Sex: Female
  Weight: 113 kg

DRUGS (4)
  1. LYRICA [Suspect]
     Indication: PRURITUS
     Dosage: 25 MG, 2X/DAY
     Dates: start: 201303
  2. LYRICA [Suspect]
     Dosage: UNK
  3. DIAZEPAM [Concomitant]
     Indication: HYPERTENSION
     Dosage: UNK
  4. COREG [Concomitant]
     Indication: HYPERTENSION
     Dosage: UNK

REACTIONS (2)
  - Off label use [Unknown]
  - Vision blurred [Unknown]
